FAERS Safety Report 12001157 (Version 2)
Quarter: 2017Q1

REPORT INFORMATION
  Report Type: Spontaneous
  Country: DE (occurrence: DE)
  Receive Date: 20160204
  Receipt Date: 20170228
  Transmission Date: 20170428
  Serious: Yes (Other)
  Sender: FDA-Public Use
  Company Number: DE-SUN PHARMACEUTICAL INDUSTRIES LTD-2016RR-110481

PATIENT
  Sex: Female

DRUGS (2)
  1. BISOHEXAL [Concomitant]
     Active Substance: BISOPROLOL FUMARATE
     Indication: HYPERTENSION
     Dosage: 0.5 DF, DAILY
     Route: 065
  2. AMOXICLAV BASICS 875 MG/125 MG FILMTABLETTEN [Suspect]
     Active Substance: AMOXICILLIN\CLAVULANIC ACID
     Indication: PRODUCT USED FOR UNKNOWN INDICATION
     Dosage: 1 DF, TID
     Route: 065
     Dates: start: 20160104, end: 20160109

REACTIONS (24)
  - Ear disorder [Recovered/Resolved]
  - Sleep disorder [Recovered/Resolved]
  - Skin burning sensation [Recovered/Resolved]
  - Burnout syndrome [Recovered/Resolved]
  - Face oedema [Recovered/Resolved]
  - Urticaria [Recovered/Resolved]
  - Wound [Recovered/Resolved]
  - Blister [Recovered/Resolved]
  - Chills [Recovered/Resolved]
  - Depressed mood [Recovered/Resolved]
  - Dysphagia [Recovered/Resolved]
  - Lip dry [Recovered/Resolved]
  - Pruritus genital [Recovered/Resolved]
  - Genital rash [Recovered/Resolved]
  - Discomfort [Recovered/Resolved]
  - Social problem [Recovered/Resolved]
  - Nail growth abnormal [Recovered/Resolved]
  - Hypersensitivity [Recovered/Resolved]
  - Rash macular [Recovered/Resolved]
  - Tongue disorder [Recovered/Resolved]
  - Impaired work ability [Recovered/Resolved]
  - Feeling cold [Recovered/Resolved]
  - Eyelid oedema [Recovered/Resolved]
  - Malaise [Recovered/Resolved]

NARRATIVE: CASE EVENT DATE: 20160110
